FAERS Safety Report 18301364 (Version 1)
Quarter: 2020Q3

REPORT INFORMATION
  Report Type: Spontaneous
  Country: US (occurrence: US)
  Receive Date: 20200923
  Receipt Date: 20200923
  Transmission Date: 20201103
  Serious: No
  Sender: FDA-Public Use
  Company Number: US-RECKITT BENCKISER HEALTHCARE INT LIMITED-RB-84740-2020

PATIENT
  Age: 56 Year
  Sex: Female

DRUGS (1)
  1. MUCINEX MAXIMUM STRENGTH [Suspect]
     Active Substance: GUAIFENESIN
     Indication: PRODUCT USED FOR UNKNOWN INDICATION
     Dosage: 2400 MILLIGRAM, SINGLE
     Route: 048
     Dates: start: 20200229

REACTIONS (2)
  - Somnolence [Unknown]
  - Accidental overdose [Unknown]

NARRATIVE: CASE EVENT DATE: 2020
